FAERS Safety Report 5585456-3 (Version None)
Quarter: 2008Q1

REPORT INFORMATION
  Report Type: 
  Country: None (occurrence: None)
  Receive Date: 20080104
  Receipt Date: 20080104
  Transmission Date: 20080703
  Serious: Yes (Life-Threatening)
  Sender: FDA-Public Use
  Company Number: None

PATIENT
  Age: 28 Year
  Sex: Male

DRUGS (2)
  1. TYLENOL PM (UNKNOWN) [Suspect]
     Indication: ACUTE HEPATIC FAILURE
     Dosage: PO
     Route: 048
     Dates: start: 20071119
  2. DIPHENHYDRAMINE (UNKNOWN) [Suspect]
     Dosage: PO
     Route: 048
     Dates: start: 20071119

REACTIONS (5)
  - ALANINE AMINOTRANSFERASE INCREASED [None]
  - ASPARTATE AMINOTRANSFERASE INCREASED [None]
  - BLOOD BILIRUBIN INCREASED [None]
  - INCORRECT DOSE ADMINISTERED [None]
  - INTENTIONAL DRUG MISUSE [None]
